FAERS Safety Report 7573067-X (Version None)
Quarter: 2011Q2

REPORT INFORMATION
  Report Type: 
  Country: None (occurrence: None)
  Receive Date: 20110627
  Receipt Date: 20110617
  Transmission Date: 20111010
  Serious: Yes (Other)
  Sender: FDA-Public Use
  Company Number: US-JNJFOC-20110609812

PATIENT
  Sex: Female
  Weight: 65.77 kg

DRUGS (3)
  1. ACTONEL [Concomitant]
     Indication: OSTEOPENIA
     Route: 048
  2. LEVAQUIN [Suspect]
     Indication: PNEUMONIA
     Route: 042
     Dates: start: 20110116, end: 20110120
  3. LEVAQUIN [Suspect]
     Indication: PRODUCT USED FOR UNKNOWN INDICATION
     Route: 048
     Dates: start: 20110121, end: 20110125

REACTIONS (2)
  - ROTATOR CUFF SYNDROME [None]
  - PERIARTHRITIS [None]
